FAERS Safety Report 8911498 (Version 1)
Quarter: 2012Q4

REPORT INFORMATION
  Report Type: 
  Country: US (occurrence: US)
  Receive Date: 20121115
  Receipt Date: 20121115
  Transmission Date: 20130627
  Serious: Yes (Other)
  Sender: FDA-Public Use
  Company Number: US-PFIZER INC-2012285868

PATIENT
  Age: 53 Year
  Sex: Male
  Weight: 145.13 kg

DRUGS (3)
  1. CELEBREX [Suspect]
     Indication: ARTHRITIS
     Dosage: 200 mg, 1x/day
     Route: 048
     Dates: start: 2003
  2. HYDROCODONE [Concomitant]
     Dosage: 10 mg, UNK
  3. LISINOPRIL [Concomitant]
     Indication: BLOOD PRESSURE HIGH
     Dosage: 12.5 mg, UNK

REACTIONS (1)
  - Myocardial infarction [Unknown]
